FAERS Safety Report 4597827-2 (Version None)
Quarter: 2005Q1

REPORT INFORMATION
  Report Type: 
  Country: None (occurrence: None)
  Receive Date: 20050301
  Receipt Date: 20050211
  Transmission Date: 20050727
  Serious: Yes (Death, Life-Threatening, Other)
  Sender: FDA-Public Use
  Company Number: GBR-2005-0001549

PATIENT
  Age: 53 Year
  Sex: Male

DRUGS (6)
  1. MORPHINE SULFATE [Suspect]
     Indication: PAIN
     Dosage: 260 MG, DAILY, ORAL
     Route: 048
     Dates: end: 20050118
  2. MORPHINE SULFATE [Suspect]
     Indication: PAIN
     Dosage: 20 MG, DAILY, ORAL
     Route: 048
     Dates: end: 20050119
  3. GEMCITABINE (GEMCITABINE) [Concomitant]
  4. TRANXENE [Concomitant]
  5. PARACETAMOL [Concomitant]
  6. ALEVE [Concomitant]

REACTIONS (6)
  - ACCIDENTAL OVERDOSE [None]
  - APNOEA [None]
  - BLOOD PRESSURE INCREASED [None]
  - DRUG INTERACTION [None]
  - INTERSTITIAL LUNG DISEASE [None]
  - MIOSIS [None]
